FAERS Safety Report 5262467-9 (Version None)
Quarter: 2007Q1

REPORT INFORMATION
  Report Type: 
  Country: None (occurrence: None)
  Receive Date: 20070309
  Receipt Date: 20070309
  Transmission Date: 20070707
  Serious: Yes (Other)
  Sender: FDA-Public Use
  Company Number: None

PATIENT
  Age: 46 Year
  Sex: Female

DRUGS (1)
  1. KENALOG-10 [Suspect]
     Indication: MELANOCYTIC NAEVUS
     Dosage: 10CC PER MG ONCE IM
     Route: 030
     Dates: start: 20061018, end: 20061018

REACTIONS (21)
  - ABDOMINAL PAIN UPPER [None]
  - BACK PAIN [None]
  - BREAST PAIN [None]
  - CHEST PAIN [None]
  - DARK CIRCLES UNDER EYES [None]
  - DRY SKIN [None]
  - DYSPNOEA [None]
  - EPISTAXIS [None]
  - HAEMORRHAGE [None]
  - HYPOAESTHESIA [None]
  - INJECTION SITE DISCOLOURATION [None]
  - INJECTION SITE RASH [None]
  - INSOMNIA [None]
  - LYMPH NODE PAIN [None]
  - MOUTH HAEMORRHAGE [None]
  - NECK PAIN [None]
  - PAIN [None]
  - RASH [None]
  - REGURGITATION [None]
  - SCAR [None]
  - TRICHORRHEXIS [None]
